FAERS Safety Report 14767985 (Version 2)
Quarter: 2018Q2

REPORT INFORMATION
  Report Type: Spontaneous
  Country: JP (occurrence: JP)
  Receive Date: 20180417
  Receipt Date: 20180418
  Transmission Date: 20180711
  Serious: Yes (Other)
  Sender: FDA-Public Use
  Company Number: JP-ROCHE-1968396

PATIENT
  Age: 80 Year
  Sex: Female

DRUGS (2)
  1. ALECENSA [Suspect]
     Active Substance: ALECTINIB HYDROCHLORIDE
     Indication: NON-SMALL CELL LUNG CANCER
     Dosage: 150 MG ONCE ON DIALYSIS DAYS, 150 MG TWICE ON NON-DIALYSIS DAYS.
     Route: 048
  2. ALECENSA [Suspect]
     Active Substance: ALECTINIB HYDROCHLORIDE
     Indication: NON-SMALL CELL LUNG CANCER
     Dosage: THE DIALYSIS DAY: TAKEN ONLY AT NIGHT, NOT IN THE MORNING.
     Route: 048
     Dates: start: 20170615

REACTIONS (2)
  - Constipation [Recovered/Resolved]
  - Colon cancer [Unknown]

NARRATIVE: CASE EVENT DATE: 20170619
